FAERS Safety Report 4852831-1 (Version None)
Quarter: 2005Q4

REPORT INFORMATION
  Report Type: 
  Country: None (occurrence: None)
  Receive Date: 20051212
  Receipt Date: 20051212
  Transmission Date: 20060501
  Serious: Yes (Death, Hospitalization)
  Sender: FDA-Public Use
  Company Number: None

PATIENT
  Sex: Female
  Weight: 56.246 kg

DRUGS (12)
  1. RITUXIMAB [Suspect]
     Indication: NON-HODGKIN'S LYMPHOMA
     Dosage: 590MG  Q 21 DAYS  IV DRIP
     Route: 041
     Dates: start: 20051109, end: 20051130
  2. CYCLOPHOSPHAMIDE [Suspect]
     Indication: NON-HODGKIN'S LYMPHOMA
     Dosage: 1180MG
     Dates: start: 20051109, end: 20051130
  3. ACETAMINOPHEN [Concomitant]
  4. DECADRON [Concomitant]
  5. ANZAMET [Concomitant]
  6. LOPRESSOR [Concomitant]
  7. ATIVAN [Concomitant]
  8. DOXORUBICIN [Concomitant]
  9. VINCRISTINE [Concomitant]
  10. PREDNISONE TAB [Concomitant]
  11. PEGFILGRASTIM [Concomitant]
  12. BENADRYL [Concomitant]

REACTIONS (14)
  - AGITATION [None]
  - BLOOD PRESSURE DECREASED [None]
  - CARDIAC ARREST [None]
  - COUGH [None]
  - DIARRHOEA [None]
  - HAEMOGLOBIN DECREASED [None]
  - LISTLESS [None]
  - LUNG INFILTRATION [None]
  - NAUSEA [None]
  - OXYGEN SATURATION DECREASED [None]
  - PLATELET COUNT DECREASED [None]
  - PYREXIA [None]
  - VOMITING [None]
  - WHITE BLOOD CELL COUNT DECREASED [None]
